FAERS Safety Report 5285914-5 (Version None)
Quarter: 2007Q1

REPORT INFORMATION
  Report Type: 
  Country: None (occurrence: None)
  Receive Date: 20070328
  Receipt Date: 20070314
  Transmission Date: 20070707
  Serious: Yes (Hospitalization)
  Sender: FDA-Public Use
  Company Number: 2007PV031654

PATIENT
  Age: 53 Year
  Sex: Female
  Weight: 176.9028 kg

DRUGS (6)
  1. BYETTA [Suspect]
     Indication: DIABETES MELLITUS NON-INSULIN-DEPENDENT
     Dosage: SEE IMAGE
     Dates: start: 20060901, end: 20061001
  2. BYETTA [Suspect]
     Indication: DIABETES MELLITUS NON-INSULIN-DEPENDENT
     Dosage: SEE IMAGE
     Dates: start: 20061001
  3. GLUCOPHAGE [Concomitant]
  4. SYNTHROID [Concomitant]
  5. ZESTRIL [Concomitant]
  6. NEXIUM [Concomitant]

REACTIONS (4)
  - BLOOD GLUCOSE INCREASED [None]
  - NEPHROLITHIASIS [None]
  - URINARY TRACT INFECTION [None]
  - WEIGHT DECREASED [None]
